FAERS Safety Report 7017123-3 (Version None)
Quarter: 2010Q3

REPORT INFORMATION
  Report Type: 
  Country: None (occurrence: None)
  Receive Date: 20100928
  Receipt Date: 20100915
  Transmission Date: 20110219
  Serious: No
  Sender: FDA-Public Use
  Company Number: US-BIOGENIDEC-2010BI006901

PATIENT
  Sex: Female
  Weight: 68 kg

DRUGS (3)
  1. TYSABRI [Suspect]
     Indication: MULTIPLE SCLEROSIS
     Route: 042
     Dates: start: 20080326, end: 20100409
  2. TYSABRI [Suspect]
     Route: 042
     Dates: start: 20100802
  3. BACLOFEN [Concomitant]
     Indication: MUSCLE SPASMS
     Route: 042

REACTIONS (2)
  - MULTIPLE SCLEROSIS RELAPSE [None]
  - URINARY TRACT INFECTION [None]
